FAERS Safety Report 23395237 (Version 1)
Quarter: 2024Q1

REPORT INFORMATION
  Report Type: Spontaneous
  Country: EG (occurrence: EG)
  Receive Date: 20240112
  Receipt Date: 20240112
  Transmission Date: 20240410
  Serious: Yes (Death, Hospitalization, Other)
  Sender: FDA-Public Use
  Company Number: EG-HIKMA PHARMACEUTICALS-EG-H14001-24-00205

PATIENT
  Age: 38 Year
  Sex: Female
  Weight: 50 kg

DRUGS (2)
  1. CARBOPLATIN [Suspect]
     Active Substance: CARBOPLATIN
     Indication: Uterine mass
     Dosage: 559.3 MILLIGRAM, DAY 1, 3W
     Route: 041
     Dates: start: 20231114
  2. PACLITAXEL [Suspect]
     Active Substance: PACLITAXEL
     Indication: Uterine mass
     Dosage: 262.5 MILLIGRAM, DAY 1
     Route: 041
     Dates: start: 20231114

REACTIONS (3)
  - Diarrhoea [Fatal]
  - Abdominal pain [Unknown]
  - Dyspnoea [Fatal]

NARRATIVE: CASE EVENT DATE: 20231115
